FAERS Safety Report 18458658 (Version 1)
Quarter: 2020Q4

REPORT INFORMATION
  Report Type: Spontaneous
  Country: PL (occurrence: PL)
  Receive Date: 20201103
  Receipt Date: 20201103
  Transmission Date: 20210114
  Serious: Yes (Hospitalization)
  Sender: FDA-Public Use
  Company Number: PL-MYLANLABS-2020M1091061

PATIENT
  Age: 37 Year
  Sex: Female
  Weight: 77 kg

DRUGS (1)
  1. KLACID [Suspect]
     Active Substance: CLARITHROMYCIN
     Indication: PRODUCT USED FOR UNKNOWN INDICATION
     Dosage: 2.5 GRAM, BID
     Route: 042
     Dates: start: 20180424, end: 20180424

REACTIONS (4)
  - Swelling [Unknown]
  - Erythema [Unknown]
  - Infusion related reaction [Unknown]
  - Pain [Unknown]

NARRATIVE: CASE EVENT DATE: 20180426
